FAERS Safety Report 10567728 (Version 1)
Quarter: 2014Q4

REPORT INFORMATION
  Report Type: Spontaneous
  Country: US (occurrence: None)
  Receive Date: 20141105
  Receipt Date: 20141105
  Transmission Date: 20150529
  Serious: No
  Sender: FDA-Public Use
  Company Number: None

PATIENT
  Age: 58 Year
  Sex: Female

DRUGS (1)
  1. TASIGNA [Suspect]
     Active Substance: NILOTINIB
     Indication: PRODUCT USED FOR UNKNOWN INDICATION
     Route: 048
     Dates: start: 201407, end: 201409

REACTIONS (10)
  - Dizziness [None]
  - Malaise [None]
  - Vomiting [None]
  - Hyperhidrosis [None]
  - Chills [None]
  - Blood iron decreased [None]
  - Tremor [None]
  - Diarrhoea [None]
  - Nausea [None]
  - Pallor [None]
